FAERS Safety Report 9226808 (Version 1)
Quarter: 2013Q2

REPORT INFORMATION
  Report Type: Spontaneous
  Country: US (occurrence: None)
  Receive Date: 20130410
  Receipt Date: 20130410
  Transmission Date: 20140414
  Serious: No
  Sender: FDA-Public Use
  Company Number: B0881289A

PATIENT
  Age: 22 Year
  Sex: Female

DRUGS (3)
  1. VANCOMYCIN [Suspect]
     Indication: CELLULITIS
     Dosage: 18 MG/KG THREE TIMES PER DAY
  2. CLINDAMYCIN [Suspect]
     Indication: CELLULITIS
  3. PIPERACILLIN SODIUM [Suspect]
     Indication: CELLULITIS

REACTIONS (4)
  - Renal failure acute [None]
  - Exposure during pregnancy [None]
  - Drug level increased [None]
  - Haemodialysis [None]
